FAERS Safety Report 5859472-8 (Version None)
Quarter: 2008Q3

REPORT INFORMATION
  Report Type: 
  Country: None (occurrence: None)
  Receive Date: 20080827
  Receipt Date: 20080822
  Transmission Date: 20090109
  Serious: Yes (Hospitalization)
  Sender: FDA-Public Use
  Company Number: A0693027A

PATIENT
  Age: 56 Year
  Sex: Female
  Weight: 107.7 kg

DRUGS (7)
  1. AVANDIA [Suspect]
     Dosage: 2MG PER DAY
     Route: 048
     Dates: start: 20070301, end: 20070401
  2. AVANDAMET [Suspect]
     Route: 048
     Dates: start: 20070401, end: 20070511
  3. GLUCOPHAGE [Concomitant]
     Dates: start: 20060101, end: 20070501
  4. GLUCOTROL [Concomitant]
     Dates: start: 20060101, end: 20070511
  5. VYTORIN [Concomitant]
  6. DETROL [Concomitant]
  7. ASPIRIN [Concomitant]

REACTIONS (3)
  - CARDIAC FAILURE CONGESTIVE [None]
  - CHEST PAIN [None]
  - INJURY [None]
